FAERS Safety Report 5049654-X (Version None)
Quarter: 2006Q2

REPORT INFORMATION
  Report Type: 
  Country: None (occurrence: None)
  Receive Date: 20060614
  Receipt Date: 20060302
  Transmission Date: 20061013
  Serious: Yes (Other)
  Sender: FDA-Public Use
  Company Number: 439108

PATIENT
  Age: 70 Year
  Sex: Female

DRUGS (1)
  1. BONIVA [Suspect]
     Indication: DRUG USE FOR UNKNOWN INDICATION
     Dates: start: 20060212

REACTIONS (5)
  - DIARRHOEA [None]
  - EPISTAXIS [None]
  - HERPES SIMPLEX [None]
  - PRURITUS [None]
  - STOMATITIS [None]
